FAERS Safety Report 10411892 (Version 2)
Quarter: 2014Q3

REPORT INFORMATION
  Report Type: Spontaneous
  Country: AU (occurrence: AU)
  Receive Date: 20140827
  Receipt Date: 20140915
  Transmission Date: 20150326
  Serious: No
  Sender: FDA-Public Use
  Company Number: AU-JNJFOC-20140816692

PATIENT
  Sex: Male

DRUGS (1)
  1. DUROGESIC [Suspect]
     Active Substance: FENTANYL
     Indication: PRODUCT USED FOR UNKNOWN INDICATION
     Route: 062

REACTIONS (5)
  - Incorrect product storage [Unknown]
  - Breakthrough pain [Recovered/Resolved]
  - Poor quality drug administered [Unknown]
  - Wrong technique in drug usage process [Unknown]
  - Product quality issue [Unknown]
